FAERS Safety Report 4953250-X (Version None)
Quarter: 2006Q1

REPORT INFORMATION
  Report Type: 
  Country: None (occurrence: None)
  Receive Date: 20060324
  Receipt Date: 20050414
  Transmission Date: 20060701
  Serious: Yes (Hospitalization, Other)
  Sender: FDA-Public Use
  Company Number: US-MERCK-0504USA02785

PATIENT
  Age: 41 Year
  Sex: Female
  Weight: 48 kg

DRUGS (6)
  1. VIOXX [Suspect]
     Indication: BONE PAIN
     Route: 048
     Dates: start: 19991101, end: 20040801
  2. VIOXX [Suspect]
     Route: 048
     Dates: start: 19991101, end: 20040801
  3. VIOXX [Suspect]
     Route: 048
     Dates: start: 19991101, end: 20040801
  4. VIOXX [Suspect]
     Indication: PELVIC PAIN
     Route: 048
     Dates: start: 19991101, end: 20040801
  5. VIOXX [Suspect]
     Route: 048
     Dates: start: 19991101, end: 20040801
  6. VIOXX [Suspect]
     Route: 048
     Dates: start: 19991101, end: 20040801

REACTIONS (8)
  - ARTHROPATHY [None]
  - PERIPHERAL VASCULAR DISORDER [None]
  - POLYTRAUMATISM [None]
  - RECTAL FISSURE [None]
  - ROAD TRAFFIC ACCIDENT [None]
  - SILENT MYOCARDIAL INFARCTION [None]
  - THROMBOSIS [None]
  - UTERINE DISORDER [None]
